FAERS Safety Report 5306139-0 (Version None)
Quarter: 2007Q2

REPORT INFORMATION
  Report Type: 
  Country: None (occurrence: None)
  Receive Date: 20070417
  Receipt Date: 20070402
  Transmission Date: 20071010
  Serious: Yes (Death, Life-Threatening)
  Sender: FDA-Public Use
  Company Number: US019364

PATIENT
  Age: 67 Year
  Sex: Male

DRUGS (7)
  1. TRISENOX [Suspect]
     Indication: ACUTE PROMYELOCYTIC LEUKAEMIA
     Dosage: 9.69 MG QD INTRAVENOUS DRIP
     Route: 041
     Dates: start: 20051228, end: 20060117
  2. DALTEPARIN SODIUM [Concomitant]
  3. QUETIAPINE FUMARATE [Concomitant]
  4. VANCOMYCIN HYDROCHLORIDE [Concomitant]
  5. CEFEPIME DIHYDROCHLORIDE [Concomitant]
  6. METHYLPHENIDATE HCL [Concomitant]
  7. PAROXETINE HCL [Concomitant]

REACTIONS (8)
  - BLOOD ALKALINE PHOSPHATASE INCREASED [None]
  - CARDIO-RESPIRATORY ARREST [None]
  - DRUG RESISTANCE [None]
  - ELECTROCARDIOGRAM QT PROLONGED [None]
  - FEBRILE NEUTROPENIA [None]
  - GAMMA-GLUTAMYLTRANSFERASE INCREASED [None]
  - HYPERGLYCAEMIA [None]
  - STAPHYLOCOCCAL SEPSIS [None]
